FAERS Safety Report 12764261 (Version 1)
Quarter: 2016Q3

REPORT INFORMATION
  Report Type: Spontaneous
  Country: GB (occurrence: GB)
  Receive Date: 20160920
  Receipt Date: 20160920
  Transmission Date: 20161109
  Serious: Yes (Other)
  Sender: FDA-Public Use
  Company Number: GB-TEVA-692698ACC

PATIENT
  Age: 40 Year
  Sex: Male
  Weight: 71.66 kg

DRUGS (26)
  1. AMITRIPTYLINE [Concomitant]
     Active Substance: AMITRIPTYLINE
  2. AVAMYS [Concomitant]
     Active Substance: FLUTICASONE FUROATE
  3. CHLORPHENAMINE [Concomitant]
     Active Substance: CHLORPHENIRAMINE MALEATE
  4. CYCLIZINE [Concomitant]
     Active Substance: CYCLIZINE
  5. NARAMIG [Concomitant]
     Active Substance: NARATRIPTAN HYDROCHLORIDE
  6. SODIUM VALPROATE [Concomitant]
     Active Substance: VALPROATE SODIUM
  7. AVEENO [Concomitant]
     Active Substance: DIMETHICONE\HOMOSALATE\OCTINOXATE\OCTISALATE\TITANIUM DIOXIDE
  8. ESOMEPRAZOLE [Concomitant]
     Active Substance: ESOMEPRAZOLE
  9. SALMETEROL XINAFOATE [Concomitant]
     Active Substance: SALMETEROL XINAFOATE
  10. ZOLEDRONIC ACID [Concomitant]
     Active Substance: ZOLEDRONIC ACID
  11. TAMSULOSIN [Suspect]
     Active Substance: TAMSULOSIN
     Indication: PROSTATIC DISORDER
     Dosage: 400 MICROGRAM DAILY; 30 MINUTES AFTER FOOD.
     Route: 048
     Dates: start: 20160824, end: 20160828
  12. FYBOGEL [Concomitant]
     Active Substance: PLANTAGO OVATA SEED
  13. GENERICS UK RANITIDINE [Concomitant]
  14. SPIRIVA [Concomitant]
     Active Substance: TIOTROPIUM BROMIDE MONOHYDRATE
  15. ADCAL-D3 [Concomitant]
     Active Substance: CALCIUM CARBONATE\CHOLECALCIFEROL
  16. CD PHARMA FLUTICASONE [Concomitant]
  17. DOMPERIDONE [Concomitant]
     Active Substance: DOMPERIDONE
  18. GAVISCON ADVANCE [Concomitant]
     Active Substance: POTASSIUM BICARBONATE\SODIUM ALGINATE
  19. MICONAZOLE NITRATE. [Concomitant]
     Active Substance: MICONAZOLE NITRATE
  20. BOTOX [Concomitant]
     Active Substance: ONABOTULINUMTOXINA
  21. CANDESARTAN [Concomitant]
     Active Substance: CANDESARTAN
  22. MEBEVERINE [Concomitant]
     Active Substance: MEBEVERINE
  23. MONTELUKAST [Concomitant]
     Active Substance: MONTELUKAST SODIUM
  24. HYOSCINE [Concomitant]
     Active Substance: SCOPOLAMINE
  25. INTAL [Concomitant]
     Active Substance: CROMOLYN SODIUM
  26. SALBUTAMOL [Concomitant]
     Active Substance: ALBUTEROL

REACTIONS (5)
  - Mouth ulceration [Recovering/Resolving]
  - Glossodynia [Recovering/Resolving]
  - Salivary hypersecretion [Recovering/Resolving]
  - Oral discomfort [Recovering/Resolving]
  - Lip dry [Recovering/Resolving]

NARRATIVE: CASE EVENT DATE: 20160824
